FAERS Safety Report 9778766 (Version 1)
Quarter: 2013Q4

REPORT INFORMATION
  Report Type: Spontaneous
  Country: US (occurrence: None)
  Receive Date: 20131220
  Receipt Date: 20131220
  Transmission Date: 20140711
  Serious: Yes (Hospitalization)
  Sender: FDA-Public Use
  Company Number: None

PATIENT
  Sex: Male
  Weight: 95.25 kg

DRUGS (2)
  1. CARBOPLATIN [Suspect]
  2. PACLITAXEL [Suspect]

REACTIONS (6)
  - Diarrhoea [None]
  - Gastrointestinal haemorrhage [None]
  - Hypotension [None]
  - Vomiting [None]
  - Renal failure acute [None]
  - Blood potassium decreased [None]
